FAERS Safety Report 4314857-6 (Version None)
Quarter: 2004Q1

REPORT INFORMATION
  Report Type: 
  Country: None (occurrence: None)
  Receive Date: 20040310
  Receipt Date: 20040310
  Transmission Date: 20041129
  Serious: Yes (Other)
  Sender: FDA-Public Use
  Company Number: None

PATIENT
  Age: 36 Year
  Sex: Male
  Weight: 113.6 kg

DRUGS (4)
  1. ENBREL [Suspect]
     Indication: PSORIASIS
     Dosage: 25 MG SQ BIW
     Dates: start: 20030123, end: 20031006
  2. METHOTREXATE [Concomitant]
  3. DOVONEX [Concomitant]
  4. TEMOVATE [Concomitant]

REACTIONS (2)
  - PRURITUS [None]
  - RASH [None]
